FAERS Safety Report 9837149 (Version 1)
Quarter: 2013Q4

REPORT INFORMATION
  Report Type: Spontaneous
  Country: US (occurrence: None)
  Receive Date: 20131205
  Receipt Date: 20131205
  Transmission Date: 20140711
  Serious: Yes (Hospitalization)
  Sender: FDA-Public Use
  Company Number: 163-POMAL-13082700

PATIENT
  Sex: Male

DRUGS (2)
  1. POMALYST (POMALIDOMIDE) (4 MILLIGRAM CAPSULES) [Suspect]
     Indication: PLASMA CELL MYELOMA
     Route: 048
     Dates: start: 20130318
  2. LOVENOX(HEPARIN-F-REACTION, SODIUM SALT) [Concomitant]

REACTIONS (2)
  - Dyspnoea [None]
  - Pyrexia [None]
